FAERS Safety Report 8417061-5 (Version None)
Quarter: 2012Q2

REPORT INFORMATION
  Report Type: 
  Country: None (occurrence: None)
  Receive Date: 20120606
  Receipt Date: 20120530
  Transmission Date: 20120825
  Serious: Yes (Other)
  Sender: FDA-Public Use
  Company Number: CA-UCBSA-058545

PATIENT
  Age: 52 Year
  Sex: Female
  Weight: 69.18 kg

DRUGS (8)
  1. CIMZIA [Suspect]
     Indication: RHEUMATOID ARTHRITIS
     Route: 058
     Dates: start: 20120501, end: 20120501
  2. FOLIC ACID [Concomitant]
     Indication: SUPPLEMENTATION THERAPY
     Route: 048
     Dates: start: 20110601
  3. PANTALOC [Concomitant]
     Indication: PROPHYLAXIS
     Route: 048
  4. SYNTHROID [Concomitant]
     Indication: HYPERTHYROIDISM
     Route: 048
  5. TYLENOL ES [Concomitant]
     Indication: ANALGESIC THERAPY
     Dosage: DOSE PER INTAKE: I-II ; NO OF INTAKES:Q4-6H
     Route: 048
  6. CIMZIA [Suspect]
     Route: 058
     Dates: start: 20120418, end: 20120516
  7. TRAMADOL HCL [Concomitant]
     Indication: ANALGESIC THERAPY
     Dosage: DOSE PER INTAKE: I-II ; NO OF INTAKES:Q4-6H
     Route: 048
  8. METHOTREXATE [Concomitant]
     Indication: RHEUMATOID ARTHRITIS
     Route: 058
     Dates: start: 20110601

REACTIONS (2)
  - HERPES ZOSTER [None]
  - INFECTION [None]
